FAERS Safety Report 8372830-5 (Version None)
Quarter: 2012Q2

REPORT INFORMATION
  Report Type: 
  Country: None (occurrence: None)
  Receive Date: 20120521
  Receipt Date: 20120509
  Transmission Date: 20120825
  Serious: Yes (Other)
  Sender: FDA-Public Use
  Company Number: IN-BAXTER-2012BAX005286

PATIENT
  Age: 65 Year
  Sex: Female

DRUGS (1)
  1. DIANEAL PD-2 W/ DEXTROSE 2.5% [Suspect]
     Indication: PERITONEAL DIALYSIS
     Route: 033

REACTIONS (2)
  - FUNGAL PERITONITIS [None]
  - PERITONITIS BACTERIAL [None]
